FAERS Safety Report 9315303 (Version 1)
Quarter: 2013Q2

REPORT INFORMATION
  Report Type: Spontaneous
  Country: US (occurrence: US)
  Receive Date: 20130529
  Receipt Date: 20130529
  Transmission Date: 20140414
  Serious: Yes (Other)
  Sender: FDA-Public Use
  Company Number: US-ROCHE-1102766

PATIENT
  Age: 35 Year
  Sex: Female
  Weight: 45.4 kg

DRUGS (2)
  1. ACCUTANE [Suspect]
     Indication: ACNE
     Route: 065
     Dates: start: 1992, end: 1993
  2. DROSPIRENONE/ESTRADIOL [Concomitant]

REACTIONS (3)
  - Colitis ulcerative [Unknown]
  - Crohn^s disease [Unknown]
  - Large intestine polyp [Unknown]
